FAERS Safety Report 4812497-3 (Version None)
Quarter: 2005Q4

REPORT INFORMATION
  Report Type: 
  Country: None (occurrence: None)
  Receive Date: 20051028
  Receipt Date: 20050207
  Transmission Date: 20060501
  Serious: No
  Sender: FDA-Public Use
  Company Number: US-GLAXOSMITHKLINE-A0544278A

PATIENT
  Age: 59 Year
  Sex: Female

DRUGS (10)
  1. ADVAIR DISKUS 100/50 [Suspect]
     Dosage: 1PUFF PER DAY
     Route: 055
     Dates: start: 20040401
  2. ATENOLOL [Concomitant]
  3. ZOLOFT [Concomitant]
  4. ACIPHEX [Concomitant]
  5. WARFARIN [Concomitant]
  6. EXCEDRIN [Concomitant]
  7. CALCIUM GLUCONATE [Concomitant]
  8. MAGNESIUM [Concomitant]
  9. MULTI-VITAMIN [Concomitant]
  10. ANTIBIOTICS [Concomitant]

REACTIONS (1)
  - INFECTION [None]
